FAERS Safety Report 24695305 (Version 1)
Quarter: 2024Q4

REPORT INFORMATION
  Report Type: Spontaneous
  Country: US (occurrence: None)
  Receive Date: 20241203
  Receipt Date: 20241203
  Transmission Date: 20250115
  Serious: Yes (Disabling, Other)
  Sender: Public
  Company Number: None

PATIENT
  Sex: Female

DRUGS (1)
  1. EPINEPHRINE [Suspect]
     Active Substance: EPINEPHRINE
     Indication: Dental care
     Dosage: 4 4  SHOTS  SUBCUTANEOUS?
     Route: 058
     Dates: start: 20241113, end: 20241113

REACTIONS (14)
  - Nonspecific reaction [None]
  - Salivary hypersecretion [None]
  - Tremor [None]
  - Malaise [None]
  - Choking [None]
  - Nausea [None]
  - Dizziness [None]
  - Dysstasia [None]
  - Balance disorder [None]
  - Vomiting [None]
  - Impaired driving ability [None]
  - Fall [None]
  - Asthenia [None]
  - Fatigue [None]

NARRATIVE: CASE EVENT DATE: 20241113
